FAERS Safety Report 9357643 (Version 19)
Quarter: 2015Q2

REPORT INFORMATION
  Report Type: Report from Study
  Country: AT (occurrence: AT)
  Receive Date: 20130620
  Receipt Date: 20150414
  Transmission Date: 20150821
  Serious: Yes (Other)
  Sender: FDA-Public Use
  Company Number: AT-ROCHE-1238809

PATIENT
  Age: 63 Year
  Sex: Female
  Weight: 50 kg

DRUGS (13)
  1. MEXALEN [Concomitant]
     Active Substance: LUBIPROSTONE
     Route: 065
     Dates: start: 20120427
  2. KREON [Concomitant]
     Active Substance: PANCRELIPASE
     Dosage: 40000/UNIT
     Route: 065
     Dates: start: 20110228
  3. CETRIZINE [Concomitant]
     Active Substance: CETIRIZINE HYDROCHLORIDE
     Route: 065
     Dates: start: 20120411
  4. IVADAL [Concomitant]
     Active Substance: ZOLPIDEM TARTRATE
     Dosage: 1 TAB
     Route: 002
     Dates: start: 20121105
  5. VEMURAFENIB [Suspect]
     Active Substance: VEMURAFENIB
     Route: 048
     Dates: start: 20130627
  6. THYREX [Concomitant]
     Active Substance: LEVOTHYROXINE SODIUM
     Route: 065
     Dates: start: 2003
  7. KREON [Concomitant]
     Active Substance: PANCRELIPASE
     Dosage: 50000/ UNIT
     Route: 065
     Dates: start: 20110718
  8. YELLOX [Concomitant]
     Active Substance: BROMFENAC SODIUM
     Dosage: 1 DROP
     Route: 065
     Dates: start: 20130207
  9. VEMURAFENIB [Suspect]
     Active Substance: VEMURAFENIB
     Indication: MALIGNANT MELANOMA
     Dosage: LAST DOSE PRIOR TO SAE ON : 21/MAY/2012
     Route: 048
     Dates: start: 20120330
  10. VEMURAFENIB [Suspect]
     Active Substance: VEMURAFENIB
     Dosage: 17/JUN/2013, LAST DOSE PRIOR TO SAE
     Route: 048
     Dates: start: 20120828, end: 20130618
  11. KREON [Concomitant]
     Active Substance: PANCRELIPASE
     Dosage: 75000 IU/L
     Route: 065
     Dates: start: 2011, end: 20110711
  12. HOVA [Concomitant]
     Active Substance: HOPS\VALERIAN
     Dosage: 2 TAB
     Route: 065
     Dates: start: 20130426
  13. VEMURAFENIB [Suspect]
     Active Substance: VEMURAFENIB
     Dosage: LAST DOSE PRIOR TO SAE ON :09/AUG/2012
     Route: 048
     Dates: start: 20120530

REACTIONS (1)
  - Granuloma [Recovered/Resolved]

NARRATIVE: CASE EVENT DATE: 20130618
